FAERS Safety Report 9944075 (Version 1)
Quarter: 2014Q1

REPORT INFORMATION
  Report Type: Spontaneous
  Country: US (occurrence: US)
  Receive Date: 20140303
  Receipt Date: 20140303
  Transmission Date: 20141002
  Serious: No
  Sender: FDA-Public Use
  Company Number: US-GILEAD-2012-0056154

PATIENT
  Age: 76 Year
  Sex: Male
  Weight: 104.76 kg

DRUGS (9)
  1. RANEXA [Suspect]
     Indication: PRODUCT USED FOR UNKNOWN INDICATION
  2. DEXILANT [Concomitant]
  3. CLARITIN                           /00413701/ [Concomitant]
  4. LISINOPRIL [Concomitant]
  5. NADOLOL [Concomitant]
  6. LIPITOR [Concomitant]
  7. PLAVIX [Concomitant]
  8. ASPIRIN [Concomitant]
  9. SENNA PLUS                         /00142201/ [Concomitant]

REACTIONS (1)
  - Muscle spasms [Recovered/Resolved]
